FAERS Safety Report 8352164-5 (Version None)
Quarter: 2012Q2

REPORT INFORMATION
  Report Type: 
  Country: None (occurrence: None)
  Receive Date: 20120509
  Receipt Date: 20120428
  Transmission Date: 20120825
  Serious: Yes (Other)
  Sender: FDA-Public Use
  Company Number: 1276556

PATIENT
  Age: 10 Year
  Sex: Male

DRUGS (2)
  1. (OTHER CHEMOTHERAPEUTICS) [Suspect]
     Indication: HAEMATOLOGICAL MALIGNANCY
  2. VINCRISTINE SULFATE [Suspect]
     Indication: HAEMATOLOGICAL MALIGNANCY

REACTIONS (1)
  - COLONIC PSEUDO-OBSTRUCTION [None]
